FAERS Safety Report 5513398-8 (Version None)
Quarter: 2007Q4

REPORT INFORMATION
  Report Type: 
  Country: None (occurrence: None)
  Receive Date: 20071112
  Receipt Date: 20071101
  Transmission Date: 20080405
  Serious: Yes (Other)
  Sender: FDA-Public Use
  Company Number: US-PFIZER INC-2007080004

PATIENT
  Sex: Female
  Weight: 91 kg

DRUGS (5)
  1. LEUPROLIDE ACETATE [Suspect]
     Route: 030
  2. ZELNORM [Concomitant]
  3. RHINOCORT [Concomitant]
  4. WELLBUTRIN [Concomitant]
  5. NEXIUM [Concomitant]

REACTIONS (4)
  - BLOOD CHOLESTEROL INCREASED [None]
  - CHEST DISCOMFORT [None]
  - DYSPNOEA [None]
  - GLUCOSE TOLERANCE IMPAIRED [None]
